FAERS Safety Report 24105134 (Version 1)
Quarter: 2024Q3

REPORT INFORMATION
  Report Type: Spontaneous
  Country: US (occurrence: US)
  Receive Date: 20240717
  Receipt Date: 20240717
  Transmission Date: 20241017
  Serious: No
  Sender: SANDOZ
  Company Number: US-SANDOZ-SDZ2024US064765

PATIENT

DRUGS (2)
  1. FERUMOXYTOL [Suspect]
     Active Substance: FERUMOXYTOL
     Indication: Product used for unknown indication
     Dosage: 40 ML
     Route: 065
     Dates: start: 20240703
  2. FERUMOXYTOL [Suspect]
     Active Substance: FERUMOXYTOL
     Dosage: 40 ML
     Route: 065
     Dates: start: 20240710

REACTIONS (2)
  - Infusion related reaction [Unknown]
  - Product availability issue [Unknown]

NARRATIVE: CASE EVENT DATE: 20240710
